FAERS Safety Report 9046344 (Version 1)
Quarter: 2013Q1

REPORT INFORMATION
  Report Type: Spontaneous
  Country: TH (occurrence: TH)
  Receive Date: 20130201
  Receipt Date: 20130201
  Transmission Date: 20140127
  Serious: Yes (Other)
  Sender: FDA-Public Use
  Company Number: TH-BRISTOL-MYERS SQUIBB COMPANY-17327420

PATIENT
  Age: 76 Year
  Sex: Male
  Weight: 79 kg

DRUGS (1)
  1. GLUCOPHAGE XR [Suspect]
     Indication: TYPE 2 DIABETES MELLITUS
     Dosage: 1DF: IN EVENING
     Route: 048
     Dates: start: 20121013, end: 20121202

REACTIONS (1)
  - Angioedema [Recovered/Resolved]
